FAERS Safety Report 8541865-1 (Version None)
Quarter: 2012Q3

REPORT INFORMATION
  Report Type: 
  Country: None (occurrence: None)
  Receive Date: 20120726
  Receipt Date: 20110914
  Transmission Date: 20120928
  Serious: No
  Sender: FDA-Public Use
  Company Number: US-ASTRAZENECA-2011SE55176

PATIENT
  Age: 60 Year
  Sex: Female
  Weight: 79.4 kg

DRUGS (4)
  1. SEROQUEL XR [Suspect]
     Route: 048
  2. TRILEPTAL [Concomitant]
  3. SEROQUEL XR [Suspect]
     Indication: BIPOLAR DISORDER
     Route: 048
  4. LITHIUM CARBONATE [Concomitant]

REACTIONS (9)
  - HEADACHE [None]
  - HEART RATE INCREASED [None]
  - CATARACT [None]
  - THROAT TIGHTNESS [None]
  - DRUG INTOLERANCE [None]
  - BRUXISM [None]
  - HOT FLUSH [None]
  - PAIN [None]
  - CHEST PAIN [None]
